FAERS Safety Report 20305929 (Version 1)
Quarter: 2022Q1

REPORT INFORMATION
  Report Type: Spontaneous
  Country: US (occurrence: US)
  Receive Date: 20220106
  Receipt Date: 20220106
  Transmission Date: 20220424
  Serious: No
  Sender: FDA-Public Use
  Company Number: US-AMNEAL PHARMACEUTICALS-2021-AMRX-04398

PATIENT
  Age: 47 Year
  Sex: Female
  Weight: 89.8 kg

DRUGS (8)
  1. ACTIVELLA [Suspect]
     Active Substance: ESTRADIOL\NORETHINDRONE ACETATE
     Indication: Uterine leiomyoma
     Dosage: 1 TABLETS, 1X/DAY
     Route: 048
     Dates: start: 20191002, end: 20200902
  2. ACTIVELLA [Suspect]
     Active Substance: ESTRADIOL\NORETHINDRONE ACETATE
     Dosage: 1 TABLETS, 1X/DAY
     Route: 048
     Dates: start: 20200902, end: 20210830
  3. ELAGOLIX [Suspect]
     Active Substance: ELAGOLIX
     Indication: Uterine leiomyoma
     Dosage: 300 MILLIGRAM, QD
     Route: 048
     Dates: start: 20191002, end: 20200902
  4. ELAGOLIX [Suspect]
     Active Substance: ELAGOLIX
     Dosage: 300 MILLIGRAM, QD
     Route: 048
     Dates: start: 20200902, end: 20210830
  5. IBUPROFEN [Concomitant]
     Active Substance: IBUPROFEN
     Indication: Pelvic pain
     Dosage: 200 MILLIGRAM, AS REQUIRED
     Route: 048
     Dates: start: 2011
  6. LEVOTHYROXINE [Concomitant]
     Active Substance: LEVOTHYROXINE
     Indication: Hypothyroidism
     Dosage: 0.05 MILLIGRAM, 1X/DAY
     Route: 048
     Dates: start: 2018
  7. VITAMINS NOS [Concomitant]
     Active Substance: VITAMINS
     Indication: Vitamin D decreased
     Dosage: 1 TABLETS, 1X/DAY
     Route: 048
     Dates: start: 20190815
  8. LORAZEPAM [Concomitant]
     Active Substance: LORAZEPAM
     Indication: Anxiety
     Dosage: 0.5 MILLIGRAM, AS REQUIRED
     Route: 048
     Dates: start: 20191018

REACTIONS (1)
  - Alopecia [Not Recovered/Not Resolved]

NARRATIVE: CASE EVENT DATE: 20210817
